FAERS Safety Report 12779893 (Version 1)
Quarter: 2016Q3

REPORT INFORMATION
  Report Type: Spontaneous
  Country: US (occurrence: US)
  Receive Date: 20160922
  Receipt Date: 20160922
  Transmission Date: 20161109
  Serious: No
  Sender: FDA-Public Use
  Company Number: None

PATIENT
  Age: 30 Year
  Sex: Male
  Weight: 62.14 kg

DRUGS (1)
  1. HALOPERIDOL 5MG [Suspect]
     Active Substance: HALOPERIDOL
     Indication: SCHIZOAFFECTIVE DISORDER
     Route: 048
     Dates: start: 20160513, end: 20160515

REACTIONS (2)
  - Dystonia [None]
  - Extrapyramidal disorder [None]

NARRATIVE: CASE EVENT DATE: 20160515
